FAERS Safety Report 9697520 (Version 1)
Quarter: 2013Q4

REPORT INFORMATION
  Report Type: Report from Study
  Country: CA (occurrence: CA)
  Receive Date: 20131120
  Receipt Date: 20131120
  Transmission Date: 20140711
  Serious: Yes (Other)
  Sender: FDA-Public Use
  Company Number: CA-JNJFOC-20131109562

PATIENT
  Age: 45 Year
  Sex: Female
  Weight: 118 kg

DRUGS (3)
  1. REMICADE [Suspect]
     Indication: CROHN^S DISEASE
     Dosage: 3 RD INFUSION
     Route: 042
     Dates: start: 20130918
  2. REMICADE [Suspect]
     Indication: CROHN^S DISEASE
     Dosage: 4TH INFUSION
     Route: 042
     Dates: start: 20131112
  3. REMICADE [Suspect]
     Indication: CROHN^S DISEASE
     Route: 042
     Dates: start: 201309

REACTIONS (4)
  - Erythema nodosum [Unknown]
  - Fistula [Unknown]
  - Eczema [Unknown]
  - Fungal infection [Unknown]
